FAERS Safety Report 11629289 (Version 1)
Quarter: 2015Q4

REPORT INFORMATION
  Report Type: Spontaneous
  Country: US (occurrence: None)
  Receive Date: 20151013
  Receipt Date: 20151013
  Transmission Date: 20160304
  Serious: Yes (Other)
  Sender: FDA-Public Use
  Company Number: None

PATIENT
  Age: 63 Year
  Sex: Male
  Weight: 81.65 kg

DRUGS (5)
  1. AMLODIPINE BESYLATE 10 MG CIPIA [Suspect]
     Active Substance: AMLODIPINE BESYLATE
     Indication: HYPERTENSION
     Route: 048
     Dates: start: 20151001, end: 20151009
  2. AMILORIDE HC1 +HCTZ [Concomitant]
  3. METOPROLOL [Concomitant]
     Active Substance: METOPROLOL
  4. VITAMIN D3 [Concomitant]
     Active Substance: CHOLECALCIFEROL
  5. CENTUM SILVER [Concomitant]

REACTIONS (3)
  - Feeling abnormal [None]
  - Product substitution issue [None]
  - Chest discomfort [None]

NARRATIVE: CASE EVENT DATE: 20151001
